FAERS Safety Report 4582372-0 (Version None)
Quarter: 2005Q1

REPORT INFORMATION
  Report Type: 
  Country: None (occurrence: None)
  Receive Date: 20050119
  Receipt Date: 20031202
  Transmission Date: 20050727
  Serious: Yes (Death)
  Sender: FDA-Public Use
  Company Number: US-JNJFOC-20031201024

PATIENT
  Age: 52 Year
  Sex: Male

DRUGS (1)
  1. DOXIL [Suspect]
     Indication: NON-HODGKIN'S LYMPHOMA
     Dosage: INTRAVENOUS
     Route: 042
     Dates: start: 20030801

REACTIONS (1)
  - NON-HODGKIN'S LYMPHOMA [None]
